FAERS Safety Report 5017094-5 (Version None)
Quarter: 2006Q2

REPORT INFORMATION
  Report Type: 
  Country: None (occurrence: None)
  Receive Date: 20060525
  Receipt Date: 20060511
  Transmission Date: 20061013
  Serious: Yes (Other)
  Sender: FDA-Public Use
  Company Number: TRP_0776_2006

PATIENT
  Age: 53 Year
  Sex: Female
  Weight: 50.8029 kg

DRUGS (5)
  1. RIBASPHERE [Suspect]
     Indication: HEPATITIS C
     Dosage: DF PO
     Route: 048
     Dates: start: 20060119
  2. PEG-INTRON [Suspect]
     Indication: HEPATITIS C
     Dosage: DF SC
     Route: 058
     Dates: start: 20060119
  3. AMBIEN [Concomitant]
  4. LORTAB [Concomitant]
  5. TYLENOL (CAPLET) [Concomitant]

REACTIONS (6)
  - ARTHRALGIA [None]
  - CRYING [None]
  - DEPRESSED MOOD [None]
  - DIFFICULTY IN WALKING [None]
  - FALL [None]
  - INSOMNIA [None]
